FAERS Safety Report 25711641 (Version 1)
Quarter: 2025Q3

REPORT INFORMATION
  Report Type: Spontaneous
  Country: US (occurrence: None)
  Receive Date: 20250821
  Receipt Date: 20250821
  Transmission Date: 20251020
  Serious: Yes (Other)
  Sender: FDA-CTU
  Company Number: None

PATIENT
  Age: 53 Year
  Sex: Male

DRUGS (12)
  1. CALASPARGASE PEGOL-MKNL [Suspect]
     Active Substance: CALASPARGASE PEGOL-MKNL
     Indication: Adenocarcinoma pancreas
     Route: 042
     Dates: start: 20250812, end: 20250812
  2. COBIMETINIB [Suspect]
     Active Substance: COBIMETINIB
     Indication: Adenocarcinoma pancreas
     Dosage: FREQUENCY : DAILY;?
     Route: 048
     Dates: start: 20250812, end: 20250814
  3. Apixaban 7/17/25 5mg PO BID DVT/PE [Concomitant]
  4. Morphine ER April 2025 30 mg PO qPM Back pain [Concomitant]
  5. Zofran/ondansetron March 2024 4mg PO QBH PRN Nausea [Concomitant]
  6. Olanzapine March 2024 5mg PO qPM Nausea [Concomitant]
  7. Sertraline June 2025 100 mg PO QD Depression [Concomitant]
  8. Pantoprazole 2024 40mg PO QD GERD [Concomitant]
  9. Famotidine May 2025 20mg PO BID GERD [Concomitant]
  10. lipase-protease-amylase (CREON) DR/EC March 2024 12,000-38,000 ~0.000 [Concomitant]
  11. Loperamide March 2024 2mg PO Q2H PRN Diarrhea [Concomitant]
  12. Senna 8/2125 Unknown PO PRN Constipation [Concomitant]

REACTIONS (5)
  - Lethargy [None]
  - Hepatic lesion [None]
  - Condition aggravated [None]
  - Disease progression [None]
  - Performance status decreased [None]

NARRATIVE: CASE EVENT DATE: 20250819
